FAERS Safety Report 9654617 (Version 1)
Quarter: 2013Q4

REPORT INFORMATION
  Report Type: Spontaneous
  Country: US (occurrence: US)
  Receive Date: 20131029
  Receipt Date: 20131029
  Transmission Date: 20140711
  Serious: No
  Sender: FDA-Public Use
  Company Number: US-BIOGENIDEC-2013BI085458

PATIENT
  Age: 64 Year
  Sex: Female

DRUGS (11)
  1. TECFIDERA [Suspect]
     Indication: MULTIPLE SCLEROSIS
     Route: 048
     Dates: start: 20130716
  2. BENADRYL [Concomitant]
  3. CELEBREX [Concomitant]
  4. CLONAZEPAM [Concomitant]
  5. DIAZEPAM [Concomitant]
  6. FLUTICASONE PROPIONATE [Concomitant]
  7. GABAPENTIN [Concomitant]
  8. HYDROCODONE- ACETAMINOPHEN [Concomitant]
  9. LEVOTHYROXINE [Concomitant]
  10. LEXAPRO [Concomitant]
  11. PREPARATION H [Concomitant]

REACTIONS (1)
  - Diarrhoea [Unknown]
